FAERS Safety Report 19116120 (Version 1)
Quarter: 2021Q2

REPORT INFORMATION
  Report Type: Spontaneous
  Country: AR (occurrence: AR)
  Receive Date: 20210410
  Receipt Date: 20210410
  Transmission Date: 20210717
  Serious: Yes (Hospitalization, Other)
  Sender: FDA-Public Use
  Company Number: AR-EPICPHARMA-AR-2021EPCLIT00386

PATIENT
  Age: 5 Year
  Sex: Male

DRUGS (8)
  1. MYCOPHENOLATE MOF [Concomitant]
     Active Substance: MYCOPHENOLATE MOFETIL
     Indication: NEPHROTIC SYNDROME
     Route: 065
  2. CLINDAMYCIN HYDROCHLORIDE. [Suspect]
     Active Substance: CLINDAMYCIN HYDROCHLORIDE
     Indication: FOURNIER^S GANGRENE
     Route: 065
  3. AMIKACIN. [Suspect]
     Active Substance: AMIKACIN
     Indication: FOURNIER^S GANGRENE
     Route: 065
  4. MEROPENEM. [Suspect]
     Active Substance: MEROPENEM
     Indication: FOURNIER^S GANGRENE
     Route: 065
  5. MEPREDNISONE [Concomitant]
     Active Substance: MEPREDNISONE
     Indication: NEPHROTIC SYNDROME
     Route: 065
  6. COTRIMOXAZOLE [Suspect]
     Active Substance: SULFAMETHOXAZOLE\TRIMETHOPRIM
     Indication: FOURNIER^S GANGRENE
     Route: 065
  7. VANCOMYCIN [Suspect]
     Active Substance: VANCOMYCIN
     Indication: FOURNIER^S GANGRENE
     Route: 065
  8. AMPHOTERICIN B DEOXYCHOLATE [Interacting]
     Active Substance: AMPHOTERICIN B
     Indication: NEPHROTIC SYNDROME
     Route: 065

REACTIONS (1)
  - Urinary tract infection fungal [Recovered/Resolved]
